FAERS Safety Report 12836907 (Version 1)
Quarter: 2016Q4

REPORT INFORMATION
  Report Type: Spontaneous
  Country: US (occurrence: US)
  Receive Date: 20161011
  Receipt Date: 20161011
  Transmission Date: 20170207
  Serious: Yes (Death, Life-Threatening, Hospitalization, Disabling)
  Sender: FDA-Public Use
  Company Number: US-ABBVIE-16P-163-1749412-00

PATIENT
  Age: 90 Year
  Sex: Male
  Weight: 59.02 kg

DRUGS (6)
  1. ALPHA LIPOIC ACID [Concomitant]
     Active Substance: .ALPHA.-LIPOIC ACID
     Indication: PRODUCT USED FOR UNKNOWN INDICATION
     Route: 065
  2. ASA [Concomitant]
     Active Substance: ASPIRIN
     Indication: PRODUCT USED FOR UNKNOWN INDICATION
     Route: 065
  3. LUPRON [Suspect]
     Active Substance: LEUPROLIDE ACETATE
     Indication: HORMONE-REFRACTORY PROSTATE CANCER
     Route: 050
  4. CURCUMIN [Concomitant]
     Active Substance: CURCUMIN
     Indication: PRODUCT USED FOR UNKNOWN INDICATION
     Route: 065
  5. XOFIGO [Suspect]
     Active Substance: RADIUM RA-223 DICHLORIDE
     Indication: HORMONE-REFRACTORY PROSTATE CANCER
     Route: 042
  6. VITAMIN E [Concomitant]
     Active Substance: .ALPHA.-TOCOPHEROL
     Indication: PRODUCT USED FOR UNKNOWN INDICATION

REACTIONS (20)
  - Systemic inflammatory response syndrome [Unknown]
  - Abdominal discomfort [Unknown]
  - Pyrexia [Unknown]
  - Decreased appetite [Unknown]
  - Nausea [Unknown]
  - Acute respiratory distress syndrome [Unknown]
  - Cyanosis [Unknown]
  - Diarrhoea [Unknown]
  - Anaemia [Unknown]
  - Vasoconstriction [Unknown]
  - Death [Fatal]
  - Pain [Unknown]
  - Hepatic mass [Unknown]
  - Abscess [Unknown]
  - Platelet count decreased [Unknown]
  - Device occlusion [Unknown]
  - Osteoporotic fracture [Unknown]
  - Pathological fracture [Unknown]
  - Cholelithiasis [Unknown]
  - Enterobacter infection [Unknown]

NARRATIVE: CASE EVENT DATE: 20160701
